FAERS Safety Report 20734595 (Version 1)
Quarter: 2022Q2

REPORT INFORMATION
  Report Type: Spontaneous
  Country: US (occurrence: None)
  Receive Date: 20220420
  Receipt Date: 20220420
  Transmission Date: 20220721
  Serious: Yes (Hospitalization)
  Sender: FDA-Public Use
  Company Number: None

PATIENT
  Age: 69 Year
  Sex: Female
  Weight: 77.1 kg

DRUGS (4)
  1. METHOTREXATE [Suspect]
     Active Substance: METHOTREXATE
     Indication: Rheumatoid arthritis
     Dosage: OTHER FREQUENCY : WEEKLY;?
     Route: 048
     Dates: start: 20210901
  2. NAPROXEN [Concomitant]
     Active Substance: NAPROXEN
  3. OMEPRAZOLE [Concomitant]
     Active Substance: OMEPRAZOLE
  4. PREDNISONE [Concomitant]
     Active Substance: PREDNISONE

REACTIONS (13)
  - Malaise [None]
  - Neck pain [None]
  - Oropharyngeal pain [None]
  - Mouth swelling [None]
  - Mouth ulceration [None]
  - Cough [None]
  - Pain in extremity [None]
  - Tachycardia [None]
  - Pancytopenia [None]
  - Neutropenia [None]
  - Stomatitis [None]
  - Renal impairment [None]
  - Drug clearance decreased [None]

NARRATIVE: CASE EVENT DATE: 20220417
